FAERS Safety Report 14190997 (Version 1)
Quarter: 2017Q4

REPORT INFORMATION
  Report Type: Spontaneous
  Country: FR (occurrence: FR)
  Receive Date: 20171115
  Receipt Date: 20171115
  Transmission Date: 20180321
  Serious: Yes (Hospitalization)
  Sender: FDA-Public Use
  Company Number: FR-PFIZER INC-2017482879

PATIENT
  Age: 79 Year
  Sex: Female

DRUGS (9)
  1. MACROGOL 400 [Concomitant]
  2. LYRICA [Suspect]
     Active Substance: PREGABALIN
     Dosage: 200 MG, UNK
     Route: 048
  3. XANAX [Concomitant]
     Active Substance: ALPRAZOLAM
     Dosage: 0.25, THREE TIMES
  4. ATACAND [Suspect]
     Active Substance: CANDESARTAN CILEXETIL
     Indication: HYPERTENSION
     Dosage: UNK
     Route: 048
     Dates: start: 20171016
  5. PROZAC [Suspect]
     Active Substance: FLUOXETINE HYDROCHLORIDE
     Dosage: 20 MG, UNK
     Route: 048
     Dates: start: 20171016
  6. ZYPREXA [Suspect]
     Active Substance: OLANZAPINE
     Dosage: 1.25 MG, DAILY
     Route: 048
  7. SULFARLEM [Concomitant]
     Active Substance: ANETHOLTRITHION
     Dosage: 25 THREE TIMES
  8. PARIET [Suspect]
     Active Substance: RABEPRAZOLE SODIUM
     Route: 048
  9. ASPIRINE PROTECT [Concomitant]
     Active Substance: ASPIRIN
     Dosage: 100

REACTIONS (4)
  - Depression [Unknown]
  - Headache [Unknown]
  - Hypertension [Unknown]
  - Hyponatraemia [Recovered/Resolved]

NARRATIVE: CASE EVENT DATE: 20171024
